FAERS Safety Report 8715733 (Version 2)
Quarter: 2013Q2

REPORT INFORMATION
  Report Type: Spontaneous
  Country: US (occurrence: None)
  Receive Date: 20120423
  Receipt Date: 20121227
  Transmission Date: 20140414
  Serious: Yes (Hospitalization)
  Sender: FDA-Public Use
  Company Number: PHHY2010US32296

PATIENT
  Age: 47 Year
  Sex: Male

DRUGS (2)
  1. EXJADE [Suspect]
     Indication: THALASSAEMIA
     Dosage: 1000 MG, QD, ORAL
     Route: 048
     Dates: start: 20060327
  2. EXJADE [Suspect]
     Indication: IRON OVERLOAD
     Dosage: 1000 MG, QD, ORAL
     Route: 048
     Dates: start: 20060327

REACTIONS (2)
  - DIARRHOEA [None]
  - TREATMENT NONCOMPLIANCE [None]
